FAERS Safety Report 7866015-6 (Version None)
Quarter: 2011Q4

REPORT INFORMATION
  Report Type: 
  Country: None (occurrence: None)
  Receive Date: 20111028
  Receipt Date: 20110407
  Transmission Date: 20120403
  Serious: No
  Sender: FDA-Public Use
  Company Number: US-GLAXOSMITHKLINE-A0921833A

PATIENT
  Age: 70 Year
  Sex: Male

DRUGS (10)
  1. DIGOXIN [Concomitant]
  2. SPIRIVA [Concomitant]
  3. SOTALOL HCL [Concomitant]
  4. ASPIRIN [Concomitant]
  5. PLAVIX [Concomitant]
  6. ALBUTEROL [Concomitant]
  7. ADVAIR DISKUS 100/50 [Suspect]
     Indication: CHRONIC OBSTRUCTIVE PULMONARY DISEASE
     Dosage: 1PUFF TWICE PER DAY
     Route: 055
     Dates: start: 20110331
  8. DILTIAZEM HCL [Concomitant]
  9. SIMVASTATIN [Concomitant]
  10. SINGULAIR [Concomitant]

REACTIONS (3)
  - PAIN [None]
  - BACK PAIN [None]
  - PAIN IN EXTREMITY [None]
